FAERS Safety Report 6694635-3 (Version None)
Quarter: 2010Q2

REPORT INFORMATION
  Report Type: 
  Country: None (occurrence: None)
  Receive Date: 20100423
  Receipt Date: 20100421
  Transmission Date: 20101027
  Serious: Yes (Other)
  Sender: FDA-Public Use
  Company Number: DE-SANOFI-AVENTIS-2010SA022995

PATIENT
  Age: 65 Year
  Sex: Male

DRUGS (1)
  1. MULTAQ [Suspect]
     Indication: DRUG USE FOR UNKNOWN INDICATION
     Route: 048
     Dates: start: 20100301

REACTIONS (3)
  - ATRIAL FIBRILLATION [None]
  - EXTRASYSTOLES [None]
  - TACHYCARDIA [None]
